FAERS Safety Report 12100540 (Version 2)
Quarter: 2016Q1

REPORT INFORMATION
  Report Type: Report from Study
  Country: DE (occurrence: DE)
  Receive Date: 20160222
  Receipt Date: 20160226
  Transmission Date: 20160526
  Serious: Yes (Hospitalization)
  Sender: FDA-Public Use
  Company Number: DE-PFIZER INC-2016083924

PATIENT
  Age: 54 Year
  Sex: Female
  Weight: 60 kg

DRUGS (5)
  1. DEXAMETHASONE. [Concomitant]
     Active Substance: DEXAMETHASONE
     Dosage: 40 MG, UNK
     Dates: start: 20160205
  2. RITUXIMAB [Concomitant]
     Active Substance: RITUXIMAB
     Dosage: 645 MG, UNK
     Dates: start: 20160204
  3. CYTARABINE. [Concomitant]
     Active Substance: CYTARABINE
     Dosage: 2X 3440 MG
     Dates: start: 20160206
  4. CISPLATIN. [Concomitant]
     Active Substance: CISPLATIN
     Dosage: 172 MG, UNK
     Dates: start: 20160205
  5. TEMSIROLIMUS [Suspect]
     Active Substance: TEMSIROLIMUS
     Dosage: 25 MG INFUSION, CYCLIC
     Route: 041
     Dates: start: 20160203, end: 20160210

REACTIONS (2)
  - Respiratory failure [Recovered/Resolved]
  - Cerebrovascular accident [Recovered/Resolved]

NARRATIVE: CASE EVENT DATE: 20160208
